FAERS Safety Report 6645788-4 (Version None)
Quarter: 2010Q1

REPORT INFORMATION
  Report Type: 
  Country: None (occurrence: None)
  Receive Date: 20100323
  Receipt Date: 20100309
  Transmission Date: 20100710
  Serious: No
  Sender: FDA-Public Use
  Company Number: US-B.I. PHARMACEUTICALS,INC./RIDGEFIELD-2010-BP-02790BP

PATIENT
  Age: 57 Year
  Sex: Female

DRUGS (3)
  1. MICARDIS [Suspect]
     Indication: HYPERTENSION
     Dosage: 40 MG
     Route: 048
     Dates: start: 20090301, end: 20090601
  2. SYNTHROID [Concomitant]
     Indication: HYPOTHYROIDISM
  3. VIVELLE-DOT [Concomitant]
     Indication: MENOPAUSE

REACTIONS (1)
  - ARTHRITIS [None]
